FAERS Safety Report 7751950-X (Version None)
Quarter: 2011Q3

REPORT INFORMATION
  Report Type: 
  Country: None (occurrence: None)
  Receive Date: 20110914
  Receipt Date: 20110914
  Transmission Date: 20111222
  Serious: No
  Sender: FDA-Public Use
  Company Number: None

PATIENT
  Sex: Female
  Weight: 90.7194 kg

DRUGS (1)
  1. ENBREL [Suspect]
     Dosage: SUBCUTANEOUS
     Route: 058

REACTIONS (3)
  - NO THERAPEUTIC RESPONSE [None]
  - NEOPLASM PROGRESSION [None]
  - BREAST CANCER METASTATIC [None]
